FAERS Safety Report 19944569 (Version 8)
Quarter: 2022Q2

REPORT INFORMATION
  Report Type: Spontaneous
  Country: FR (occurrence: FR)
  Receive Date: 20211012
  Receipt Date: 20220615
  Transmission Date: 20220721
  Serious: Yes (Other)
  Sender: FDA-Public Use
  Company Number: None

PATIENT
  Age: 55 Year
  Sex: Male
  Weight: 70 kg

DRUGS (64)
  1. LANSOPRAZOLE [Suspect]
     Active Substance: LANSOPRAZOLE
     Indication: Prophylaxis against gastrointestinal ulcer
     Dosage: 30 MILLIGRAM, QD (START:08-APR-2021)
     Route: 048
  2. SUFENTANIL [Suspect]
     Active Substance: SUFENTANIL
     Indication: Sedation
     Dosage: 10 UG/ HOUR 1ST ADMINISTRATION TIME D16(START:07-APR-2021)
     Route: 042
     Dates: end: 20210416
  3. SUFENTANIL [Suspect]
     Active Substance: SUFENTANIL
     Dosage: UNK
     Dates: start: 20210421, end: 20210423
  4. URAPIDIL [Suspect]
     Active Substance: URAPIDIL
     Indication: Product used for unknown indication
     Dosage: UNK (START 18-APR-2021)
     Dates: end: 20210421
  5. ATRACURIUM [Suspect]
     Active Substance: ATRACURIUM
     Indication: Product used for unknown indication
     Dosage: UNK (START:08-APR-2021)
     Dates: end: 20210430
  6. MEROPENEM [Suspect]
     Active Substance: MEROPENEM
     Indication: Product used for unknown indication
     Dosage: UNK (START:04-APR-2021 )
     Dates: end: 20210506
  7. MEROPENEM [Suspect]
     Active Substance: MEROPENEM
     Dosage: UNK
     Dates: start: 20210513, end: 20210515
  8. MEROPENEM [Suspect]
     Active Substance: MEROPENEM
     Dosage: UNK
     Dates: start: 20210517
  9. MEROPENEM [Suspect]
     Active Substance: MEROPENEM
     Dosage: UNK
     Dates: start: 20210405, end: 20210506
  10. FUROSEMIDE [Suspect]
     Active Substance: FUROSEMIDE
     Indication: Product used for unknown indication
     Dosage: UNK (START:26-MAR-2021)
     Dates: end: 20210430
  11. FUROSEMIDE [Suspect]
     Active Substance: FUROSEMIDE
     Dosage: UNK, (4000 UI X 2 / JDELAI 1ERE ADMINISTRATION : J28)
     Route: 058
     Dates: start: 20210326, end: 20210430
  12. AMIKACIN [Suspect]
     Active Substance: AMIKACIN
     Indication: Product used for unknown indication
     Dosage: UNK (START 21-APR-2021)
  13. AMIKACIN [Suspect]
     Active Substance: AMIKACIN
     Dosage: UNK (START 04-MAY-2021)
     Dates: end: 20210504
  14. AMIKACIN [Suspect]
     Active Substance: AMIKACIN
     Dosage: UNK (14-MAY-2021)
     Dates: end: 20210514
  15. ACYCLOVIR [Suspect]
     Active Substance: ACYCLOVIR
     Indication: Product used for unknown indication
     Dosage: UNK (23-APR-2021)
     Dates: end: 20210430
  16. CIPROFLOXACIN [Suspect]
     Active Substance: CIPROFLOXACIN
     Indication: Product used for unknown indication
     Dosage: UNK (02-MAY-2021)
     Dates: end: 20210504
  17. CIPROFLOXACIN [Suspect]
     Active Substance: CIPROFLOXACIN
     Dosage: UNK
     Dates: start: 20210508, end: 20210515
  18. PROPOFOL [Suspect]
     Active Substance: PROPOFOL
     Indication: Product used for unknown indication
     Dosage: UNK (START:07-APR-2021)
  19. PIPERACILLIN SODIUM\TAZOBACTAM SODIUM [Suspect]
     Active Substance: PIPERACILLIN SODIUM\TAZOBACTAM SODIUM
     Indication: Product used for unknown indication
     Dosage: UNK (START 21-APR-2021)
     Dates: end: 20210423
  20. MIDAZOLAM HYDROCHLORIDE [Suspect]
     Active Substance: MIDAZOLAM HYDROCHLORIDE
     Indication: Seizure
     Dosage: 50 MILLIGRAM (START:07-APR-2021)
     Route: 042
  21. COLISTIN [Suspect]
     Active Substance: COLISTIN
     Indication: Product used for unknown indication
     Dosage: UNK (START 07-MAY-2021)
     Dates: end: 20210507
  22. METRONIDAZOLE [Suspect]
     Active Substance: METRONIDAZOLE
     Indication: Product used for unknown indication
     Dosage: 1 DOSAGE FORM
     Dates: start: 20210409, end: 20210414
  23. HEPARIN SODIUM [Concomitant]
     Active Substance: HEPARIN SODIUM
     Indication: Anticoagulant therapy
     Dosage: UNK, (4000 UI X2 / J D?LAI 1?RE ADMINISTRATION : J28)(START:26-MAR-2021)
     Route: 058
  24. HEPARIN SODIUM [Concomitant]
     Active Substance: HEPARIN SODIUM
     Dosage: UNK
  25. MIDAZOLAM [Concomitant]
     Active Substance: MIDAZOLAM
     Indication: Sedation
     Dosage: 50 MILLIGRAM (START:07-APR-2021)
     Route: 058
  26. MIDAZOLAM [Concomitant]
     Active Substance: MIDAZOLAM
     Indication: Seizure
  27. CAYSTON [Concomitant]
     Active Substance: AZTREONAM
     Indication: Product used for unknown indication
     Dosage: UNK (23-APR-2021)
     Dates: start: 20210423, end: 20210501
  28. BUMETANIDE [Concomitant]
     Active Substance: BUMETANIDE
     Indication: Product used for unknown indication
     Dosage: UNK (START 05-MAY-2021)
     Dates: start: 20210505
  29. BUMETANIDE [Concomitant]
     Active Substance: BUMETANIDE
     Dosage: UNK
  30. INSULIN NOS [Concomitant]
     Active Substance: INSULIN NOS
     Indication: Product used for unknown indication
     Dosage: UNK DOSAGE FORM
     Dates: start: 20210326
  31. HYDROCHLOROTHIAZIDE [Concomitant]
     Active Substance: HYDROCHLOROTHIAZIDE
     Indication: Product used for unknown indication
     Dosage: UNK (01-MAY-2021)
     Dates: end: 20210504
  32. IMIPENEM [Concomitant]
     Active Substance: IMIPENEM
     Indication: Product used for unknown indication
     Dosage: UNK DOSAGE FORM
     Dates: start: 20210505, end: 20210518
  33. IMIPENEM [Concomitant]
     Active Substance: IMIPENEM
     Dosage: UNK
     Dates: start: 20210326
  34. COLISTIMETHATE SODIUM [Concomitant]
     Active Substance: COLISTIMETHATE SODIUM
     Indication: Product used for unknown indication
     Dosage: 1 DOSAGE FORM, QD
     Dates: start: 20210507, end: 20210507
  35. AZTREONAM [Concomitant]
     Active Substance: AZTREONAM
     Indication: Product used for unknown indication
     Dosage: UNK (START DATE:23-APR-2021)
     Dates: end: 20210501
  36. MOVICOL [Concomitant]
     Active Substance: POLYETHYLENE GLYCOL 3350\POTASSIUM CHLORIDE\SODIUM BICARBONATE\SODIUM CHLORIDE
     Indication: Product used for unknown indication
     Dosage: UNK
  37. AMLODIPINE BESYLATE [Concomitant]
     Active Substance: AMLODIPINE BESYLATE
     Indication: Product used for unknown indication
     Dosage: 5 MILLIGRAM, PM
  38. METFORMIN [Concomitant]
     Active Substance: METFORMIN HYDROCHLORIDE
     Indication: Diabetes mellitus
     Dosage: 850 MILLIGRAM, BID
  39. METFORMIN [Concomitant]
     Active Substance: METFORMIN HYDROCHLORIDE
     Indication: Type 2 diabetes mellitus
  40. NORMACOL [Concomitant]
     Active Substance: HERBALS\KARAYA GUM
     Indication: Product used for unknown indication
     Dosage: UNK
  41. POLYETHYLENE GLYCOL 3350 [Concomitant]
     Active Substance: POLYETHYLENE GLYCOL 3350
     Dosage: UNK
  42. HERBALS\KARAYA GUM [Concomitant]
     Active Substance: HERBALS\KARAYA GUM
     Indication: Product used for unknown indication
     Dosage: UNK
  43. AMLODIPINE BESYLATE [Concomitant]
     Active Substance: AMLODIPINE BESYLATE
     Indication: Product used for unknown indication
     Dosage: 5 MILLIGRAM, QD (5 MG, QD (EVENING)
  44. METFORMIN HYDROCHLORIDE [Concomitant]
     Active Substance: METFORMIN HYDROCHLORIDE
     Indication: Type 2 diabetes mellitus
     Dosage: 1700 MILLIGRAM, QD (850 MILLIGRAM, BID)
  45. METFORMIN HYDROCHLORIDE [Concomitant]
     Active Substance: METFORMIN HYDROCHLORIDE
     Dosage: 300 MILLIGRAM, QD (150 MILLIGRAM, BID )
  46. METFORMIN HYDROCHLORIDE [Concomitant]
     Active Substance: METFORMIN HYDROCHLORIDE
     Dosage: UNK
  47. METFORMIN HYDROCHLORIDE [Concomitant]
     Active Substance: METFORMIN HYDROCHLORIDE
     Dosage: 300 MILLIGRAM, BID
  48. FUROSEMIDE [Concomitant]
     Active Substance: FUROSEMIDE
     Indication: Product used for unknown indication
     Dosage: 4000 INTERNATIONAL UNIT
     Route: 058
     Dates: start: 20210326, end: 20210430
  49. PIPERACILLIN SODIUM\TAZOBACTAM SODIUM [Concomitant]
     Active Substance: PIPERACILLIN SODIUM\TAZOBACTAM SODIUM
     Indication: Product used for unknown indication
     Dosage: UNK DOSAGE FORM
     Dates: start: 20210421, end: 20210423
  50. SUFENTANIL [Concomitant]
     Active Substance: SUFENTANIL
     Indication: Sedation
     Dosage: UNK
     Dates: start: 20210421, end: 20210423
  51. SUFENTANIL [Concomitant]
     Active Substance: SUFENTANIL
     Dosage: 1 DOSAGE FORM
     Route: 042
     Dates: start: 20210407, end: 20210416
  52. MEROPENEM [Concomitant]
     Active Substance: MEROPENEM
     Indication: Product used for unknown indication
     Dosage: UNK
     Dates: start: 20210404, end: 20210506
  53. MEROPENEM [Concomitant]
     Active Substance: MEROPENEM
     Dosage: UNK
     Dates: start: 20210513, end: 20210515
  54. MEROPENEM [Concomitant]
     Active Substance: MEROPENEM
     Dosage: UNK
     Dates: start: 20210517
  55. CIPROFLOXACIN [Concomitant]
     Active Substance: CIPROFLOXACIN
     Dosage: 1 DOSAGE FORM
     Dates: start: 20210508, end: 20210515
  56. CIPROFLOXACIN [Concomitant]
     Active Substance: CIPROFLOXACIN
     Dosage: 1 DOSAGE FORM
     Dates: start: 20210502, end: 20210504
  57. PROPOFOL [Concomitant]
     Active Substance: PROPOFOL
     Indication: Product used for unknown indication
     Dosage: UNK
     Dates: start: 20210407
  58. LANSOPRAZOLE [Concomitant]
     Active Substance: LANSOPRAZOLE
     Indication: Prophylaxis against gastrointestinal ulcer
     Dosage: 30 MILLIGRAM, QD
     Route: 048
     Dates: start: 20210408
  59. ACYCLOVIR [Concomitant]
     Active Substance: ACYCLOVIR
     Indication: Product used for unknown indication
     Dosage: UNK
     Dates: start: 20210423, end: 20210430
  60. AMIKACIN [Concomitant]
     Active Substance: AMIKACIN
     Indication: Product used for unknown indication
     Dosage: UNK, QD
     Dates: start: 20210421
  61. AMIKACIN [Concomitant]
     Active Substance: AMIKACIN
     Dosage: UNK
     Dates: start: 20210504, end: 20210504
  62. AMIKACIN [Concomitant]
     Active Substance: AMIKACIN
     Dosage: UNK
     Dates: start: 20210514, end: 20210514
  63. ATRACURIUM BESYLATE [Concomitant]
     Active Substance: ATRACURIUM BESYLATE
     Indication: Product used for unknown indication
     Dosage: UNK DOSAGE FORM
     Dates: start: 20210408, end: 20210430
  64. URAPIDIL [Concomitant]
     Active Substance: URAPIDIL
     Indication: Product used for unknown indication
     Dosage: 1 DOSAGE FORM
     Dates: start: 20210418, end: 20210421

REACTIONS (6)
  - Hepatic cytolysis [Unknown]
  - Condition aggravated [Recovered/Resolved]
  - Rash maculo-papular [Recovering/Resolving]
  - Thrombocytopenia [Recovered/Resolved]
  - Eosinophilia [Recovering/Resolving]
  - Leukocytosis [Unknown]
